FAERS Safety Report 6619336-9 (Version None)
Quarter: 2010Q1

REPORT INFORMATION
  Report Type: 
  Country: None (occurrence: None)
  Receive Date: 20100303
  Receipt Date: 20100218
  Transmission Date: 20100710
  Serious: Yes (Other)
  Sender: FDA-Public Use
  Company Number: 1000012098

PATIENT
  Age: 67 Year
  Sex: Male

DRUGS (1)
  1. MEMANTINE               (MEMANTIN HYDROCHLORIDE) [Suspect]
     Indication: DEMENTIA
     Dosage: ORAL
     Route: 048

REACTIONS (2)
  - AGITATION [None]
  - EPILEPSY [None]
